FAERS Safety Report 13553027 (Version 2)
Quarter: 2017Q2

REPORT INFORMATION
  Report Type: Spontaneous
  Country: RO (occurrence: RO)
  Receive Date: 20170517
  Receipt Date: 20170529
  Transmission Date: 20170830
  Serious: Yes (Hospitalization, Other)
  Sender: FDA-Public Use
  Company Number: RO-ROCHE-1935717

PATIENT
  Age: 13 Year
  Sex: Male

DRUGS (4)
  1. LEVOTHYROXINE. [Concomitant]
     Active Substance: LEVOTHYROXINE
  2. SOMATROPIN [Suspect]
     Active Substance: SOMATROPIN
     Indication: DWARFISM
     Route: 065
     Dates: start: 201105
  3. SOMATROPIN [Suspect]
     Active Substance: SOMATROPIN
     Indication: GROWTH RETARDATION
  4. HYDROCORTISONE. [Concomitant]
     Active Substance: HYDROCORTISONE

REACTIONS (11)
  - Ulcerative keratitis [Unknown]
  - Delayed puberty [Unknown]
  - Craniopharyngioma [Unknown]
  - Neoplasm recurrence [Unknown]
  - Psychomotor hyperactivity [Unknown]
  - Drug ineffective [Unknown]
  - Hypopituitarism [Unknown]
  - Optic atrophy [Unknown]
  - Intracranial pressure increased [Unknown]
  - Adrenal insufficiency [Unknown]
  - Hypothyroidism [Unknown]
